FAERS Safety Report 18607999 (Version 1)
Quarter: 2020Q4

REPORT INFORMATION
  Report Type: Spontaneous
  Country: US (occurrence: US)
  Receive Date: 20201211
  Receipt Date: 20201211
  Transmission Date: 20210114
  Serious: Yes (Other)
  Sender: FDA-Public Use
  Company Number: US-PURDUE-USA-2020-0183162

PATIENT
  Sex: Female

DRUGS (1)
  1. OXYCONTIN [Suspect]
     Active Substance: OXYCODONE HYDROCHLORIDE
     Indication: PRODUCT USED FOR UNKNOWN INDICATION
     Dosage: UNK
     Route: 048

REACTIONS (10)
  - Arthralgia [Unknown]
  - Depression [Unknown]
  - Hypoaesthesia [Unknown]
  - Suicide attempt [Unknown]
  - Drug withdrawal syndrome [Unknown]
  - Drug dependence [Unknown]
  - General physical health deterioration [Unknown]
  - Back pain [Unknown]
  - Nerve injury [Unknown]
  - Anxiety disorder [Unknown]
